FAERS Safety Report 8916638 (Version 1)
Quarter: 2012Q4

REPORT INFORMATION
  Report Type: 
  Country: SE (occurrence: SE)
  Receive Date: 20121120
  Receipt Date: 20121120
  Transmission Date: 20130627
  Serious: Yes (Hospitalization)
  Sender: FDA-Public Use
  Company Number: SE-PFIZER INC-2012284446

PATIENT
  Age: 78 Year
  Sex: Female
  Weight: 66.4 kg

DRUGS (13)
  1. GENOTROPIN [Suspect]
     Dosage: 0.4 mg, 1x/day, 7 injections/week
     Route: 058
     Dates: start: 19971125
  2. CORTISONE ACETATE [Concomitant]
     Indication: ACTH DECREASED
     Dosage: UNK
     Dates: start: 19840101
  3. DESMOPRESSIN [Concomitant]
     Indication: ADH DECREASED
     Dosage: UNK
     Dates: start: 19840101
  4. ESTRADIOL [Concomitant]
     Indication: LUTEINISING HORMONE DEFICIENCY
     Dosage: UNK
     Dates: start: 20000315
  5. ESTRADIOL [Concomitant]
     Indication: FOLLICLE-STIMULATING HORMONE DEFICIENCY
  6. ESTRADIOL [Concomitant]
     Indication: OVARIAN DISORDER
  7. ESTRADIOL [Concomitant]
     Indication: HYPOGONADISM
  8. GESTAPURAN [Concomitant]
     Indication: LUTEINISING HORMONE DEFICIENCY
     Dosage: UNK
     Dates: start: 20000315
  9. GESTAPURAN [Concomitant]
     Indication: FOLLICLE-STIMULATING HORMONE DEFICIENCY
  10. GESTAPURAN [Concomitant]
     Indication: OVARIAN DISORDER
  11. GESTAPURAN [Concomitant]
     Indication: HYPOGONADISM
  12. LEVOTHYROXINE [Concomitant]
     Indication: THYROID DISORDER
     Dosage: UNK
     Dates: start: 19660101
  13. LEVOTHYROXINE [Concomitant]
     Indication: PRIMARY HYPOTHYROIDISM

REACTIONS (1)
  - Syncope [Unknown]
